FAERS Safety Report 19134330 (Version 1)
Quarter: 2021Q2

REPORT INFORMATION
  Report Type: Spontaneous
  Country: US (occurrence: US)
  Receive Date: 20210414
  Receipt Date: 20210414
  Transmission Date: 20210717
  Serious: Yes (Other)
  Sender: FDA-Public Use
  Company Number: None

PATIENT
  Age: 49 Year
  Sex: Female
  Weight: 105.69 kg

DRUGS (3)
  1. METOPROLOL XL 25 [Suspect]
     Active Substance: METOPROLOL SUCCINATE
     Indication: HYPERTENSION
     Route: 048
     Dates: start: 20001119, end: 20001231
  2. METOPROLOL XL 50 [Suspect]
     Active Substance: METOPROLOL SUCCINATE
     Indication: MIGRAINE
     Route: 048
     Dates: start: 20130102
  3. TOPROL XL [Concomitant]
     Active Substance: METOPROLOL SUCCINATE

REACTIONS (3)
  - Palpitations [None]
  - Heart rate irregular [None]
  - Product substitution issue [None]
